FAERS Safety Report 12641907 (Version 1)
Quarter: 2016Q3

REPORT INFORMATION
  Report Type: Spontaneous
  Country: US (occurrence: US)
  Receive Date: 20160810
  Receipt Date: 20160810
  Transmission Date: 20161109
  Serious: No
  Sender: FDA-Public Use
  Company Number: US-TARO-2015TAR00653

PATIENT
  Age: 63 Year
  Sex: Female

DRUGS (1)
  1. CLOBETASOL PROPIONATE CREAM USP 0.05% [Suspect]
     Active Substance: CLOBETASOL PROPIONATE
     Indication: ARTHROPOD STING
     Dosage: ENOUGH TO COVER THE AREA, A COUPLE OF TIMES ON 05-JUL-2015
     Route: 061
     Dates: start: 20150705, end: 20150705

REACTIONS (2)
  - Erythema [Recovering/Resolving]
  - Drug ineffective for unapproved indication [Not Recovered/Not Resolved]

NARRATIVE: CASE EVENT DATE: 20150705
